FAERS Safety Report 5060643-1 (Version None)
Quarter: 2006Q2

REPORT INFORMATION
  Report Type: 
  Country: None (occurrence: None)
  Receive Date: 20060630
  Receipt Date: 20051117
  Transmission Date: 20061013
  Serious: Yes (Life-Threatening, Hospitalization)
  Sender: FDA-Public Use
  Company Number: US200511001967

PATIENT
  Age: 36 Year
  Sex: Male
  Weight: 248 kg

DRUGS (2)
  1. HUMALOG [Suspect]
     Indication: DIABETES MELLITUS
     Dates: start: 20050521
  2. LANTUS [Concomitant]

REACTIONS (1)
  - HYPOGLYCAEMIA [None]
